FAERS Safety Report 20921582 (Version 5)
Quarter: 2023Q4

REPORT INFORMATION
  Report Type: Report from Study
  Country: CN (occurrence: CN)
  Receive Date: 20220606
  Receipt Date: 20231023
  Transmission Date: 20240110
  Serious: Yes (Life-Threatening, Hospitalization)
  Sender: FDA-Public Use
  Company Number: CN-ABBVIE-22P-035-4416682-00

PATIENT
  Age: 75 Year
  Sex: Male

DRUGS (11)
  1. VENETOCLAX [Suspect]
     Active Substance: VENETOCLAX
     Indication: Myelodysplastic syndrome
     Dosage: DAYS 1 - 14 OF EACH 28-DAY CYCLE
     Route: 048
     Dates: start: 20220509, end: 20220621
  2. AZACITIDINE [Suspect]
     Active Substance: AZACITIDINE
     Indication: Myelodysplastic syndrome
     Dosage: 7 DAYS WITHIN THE FIRST 9 CALENDAR DAYS OF EACH 28-DAY CYCLE
     Route: 058
     Dates: start: 20220509, end: 20220614
  3. ALLOPURIN [Concomitant]
     Indication: Prophylaxis
     Route: 048
     Dates: start: 20220426, end: 20220526
  4. FEBUXOSTAT [Concomitant]
     Active Substance: FEBUXOSTAT
     Indication: Prophylaxis
     Route: 048
     Dates: start: 20220426, end: 20220526
  5. DIISOPROPYLAMINE DICHLOROACETATE [Concomitant]
     Indication: Prophylaxis
     Route: 041
     Dates: start: 20220426, end: 20220526
  6. LANSOPRAZOLE [Concomitant]
     Active Substance: LANSOPRAZOLE
     Indication: Antacid therapy
     Route: 041
     Dates: start: 20220426, end: 20220526
  7. CEFTIZOXIME SODIUM [Concomitant]
     Active Substance: CEFTIZOXIME SODIUM
     Indication: Infection prophylaxis
     Dosage: TIME INTERVAL: 0.33333333 DAYS
     Route: 041
     Dates: start: 20220501, end: 20220526
  8. TRIMETBUTINE MALEATE [Concomitant]
     Indication: Prophylaxis
     Route: 048
     Dates: start: 20220503, end: 20220526
  9. DOLASETRON MESYLATE [Concomitant]
     Active Substance: DOLASETRON MESYLATE
     Indication: Prophylaxis of nausea and vomiting
     Route: 040
     Dates: start: 20220509, end: 20220526
  10. THROMBOPOIETIN [Concomitant]
     Active Substance: THROMBOPOIETIN
     Indication: Platelet count decreased
     Route: 058
     Dates: start: 20220518, end: 20220526
  11. HUMAN GRANULOCYTE STIMULATING FACTOR [Concomitant]
     Indication: White blood cell count decreased
     Route: 058
     Dates: start: 20220518, end: 20220526

REACTIONS (4)
  - Lymphocyte count decreased [Not Recovered/Not Resolved]
  - White blood cell count decreased [Recovered/Resolved]
  - Febrile neutropenia [Recovered/Resolved]
  - Neutropenia [Recovered/Resolved]

NARRATIVE: CASE EVENT DATE: 20220520
